FAERS Safety Report 9920387 (Version 2)
Quarter: 2014Q1

REPORT INFORMATION
  Report Type: Report from Study
  Country: US (occurrence: US)
  Receive Date: 20140224
  Receipt Date: 20140310
  Transmission Date: 20141002
  Serious: Yes (Death, Other)
  Sender: FDA-Public Use
  Company Number: US-ACTELION-A-US2014-94955

PATIENT
  Age: 51 Year
  Sex: Female

DRUGS (1)
  1. TRACLEER [Suspect]
     Indication: PULMONARY ARTERIAL HYPERTENSION
     Dosage: UNK
     Route: 048
     Dates: end: 20140210

REACTIONS (7)
  - Renal failure [Fatal]
  - Anuria [Fatal]
  - Pulmonary vascular disorder [Fatal]
  - Disease progression [Fatal]
  - Multi-organ failure [Fatal]
  - Fluid overload [Unknown]
  - Cardiac output decreased [Fatal]
